FAERS Safety Report 13972150 (Version 1)
Quarter: 2017Q3

REPORT INFORMATION
  Report Type: Spontaneous
  Country: US (occurrence: US)
  Receive Date: 20170914
  Receipt Date: 20170914
  Transmission Date: 20171128
  Serious: No
  Sender: FDA-Public Use
  Company Number: US-ASTELLAS-2016US041713

PATIENT
  Age: 92 Year
  Sex: Male

DRUGS (1)
  1. XTANDI [Suspect]
     Active Substance: ENZALUTAMIDE
     Indication: PRODUCT USED FOR UNKNOWN INDICATION
     Route: 065

REACTIONS (7)
  - Decreased appetite [Unknown]
  - Memory impairment [Unknown]
  - Nausea [Unknown]
  - Confusional state [Unknown]
  - Visual impairment [Unknown]
  - Eating disorder [Unknown]
  - Asthenia [Unknown]
